FAERS Safety Report 6645715-X (Version None)
Quarter: 2010Q1

REPORT INFORMATION
  Report Type: 
  Country: None (occurrence: None)
  Receive Date: 20100318
  Receipt Date: 20100318
  Transmission Date: 20100710
  Serious: No
  Sender: FDA-Public Use
  Company Number: None

PATIENT
  Sex: Female
  Weight: 48.9885 kg

DRUGS (1)
  1. AVELOX [Suspect]
     Indication: LUNG INFECTION
     Dosage: 1  1 A DAY
     Dates: start: 20100203, end: 20100212

REACTIONS (9)
  - BRAIN OEDEMA [None]
  - CEREBROVASCULAR DISORDER [None]
  - DIARRHOEA [None]
  - DYSPNOEA [None]
  - HEADACHE [None]
  - INSOMNIA [None]
  - NO THERAPEUTIC RESPONSE [None]
  - PYREXIA [None]
  - VOMITING [None]
